FAERS Safety Report 5190011-3 (Version None)
Quarter: 2006Q4

REPORT INFORMATION
  Report Type: 
  Country: None (occurrence: None)
  Receive Date: 20061218
  Receipt Date: 20061206
  Transmission Date: 20070319
  Serious: Yes (Life-Threatening, Other)
  Sender: FDA-Public Use
  Company Number: OMPQ-NO-0612S-1564

PATIENT
  Age: 49 Year
  Weight: 114 kg

DRUGS (1)
  1. OMNIPAQUE 140 [Suspect]
     Indication: DEEP VEIN THROMBOSIS
     Dosage: 150 ML, SINGLE DOSE, I.V.
     Route: 042
     Dates: start: 20061125, end: 20061125

REACTIONS (6)
  - DYSPNOEA [None]
  - LOGORRHOEA [None]
  - PSYCHOMOTOR HYPERACTIVITY [None]
  - RESPIRATORY ARREST [None]
  - RESTLESSNESS [None]
  - WHEEZING [None]
